FAERS Safety Report 19098707 (Version 1)
Quarter: 2021Q2

REPORT INFORMATION
  Report Type: Report from Study
  Country: CA (occurrence: CA)
  Receive Date: 20210406
  Receipt Date: 20210406
  Transmission Date: 20210717
  Serious: Yes (Life-Threatening, Other)
  Sender: FDA-Public Use
  Company Number: CA-UCBSA-2021015072

PATIENT

DRUGS (1)
  1. LEVETIRACETAM. [Suspect]
     Active Substance: LEVETIRACETAM
     Indication: STATUS EPILEPTICUS

REACTIONS (6)
  - Respiratory depression [Unknown]
  - Behaviour disorder [Unknown]
  - Hypotension [Unknown]
  - Product use in unapproved indication [Unknown]
  - Extravasation [Unknown]
  - Drug ineffective [Unknown]
